FAERS Safety Report 20651059 (Version 3)
Quarter: 2022Q2

REPORT INFORMATION
  Report Type: Spontaneous
  Country: US (occurrence: US)
  Receive Date: 20220329
  Receipt Date: 20220418
  Transmission Date: 20220720
  Serious: Yes (Hospitalization, Other)
  Sender: FDA-Public Use
  Company Number: US-BIOMARINAP-US-2022-142226

PATIENT
  Age: 3 Year
  Sex: Male
  Weight: 15.4 kg

DRUGS (4)
  1. BRINEURA [Suspect]
     Active Substance: CERLIPONASE ALFA
     Indication: Neuronal ceroid lipofuscinosis
     Dosage: 300 MILLIGRAM, QOW
     Route: 020
     Dates: start: 20220318
  2. VIMPAT [Concomitant]
     Active Substance: LACOSAMIDE
     Indication: Seizure
     Dosage: 6 MILLILITER, BID
  3. LACOSAMIDE [Concomitant]
     Active Substance: LACOSAMIDE
     Indication: Epilepsy
     Dosage: 60 MILLIGRAM, BID
  4. ISOVUE [Concomitant]
     Active Substance: IOPAMIDOL
     Indication: Catheter management
     Dosage: 1 MILLILITER
     Dates: start: 20220318

REACTIONS (5)
  - Myoclonus [Not Recovered/Not Resolved]
  - Seizure [Unknown]
  - Dyskinesia [Not Recovered/Not Resolved]
  - Tremor [Not Recovered/Not Resolved]
  - Infantile spasms [Not Recovered/Not Resolved]

NARRATIVE: CASE EVENT DATE: 20220319
